FAERS Safety Report 5626216-4 (Version None)
Quarter: 2008Q1

REPORT INFORMATION
  Report Type: 
  Country: None (occurrence: None)
  Receive Date: 20080214
  Receipt Date: 20080207
  Transmission Date: 20080703
  Serious: Yes (Other)
  Sender: FDA-Public Use
  Company Number: B0499648A

PATIENT
  Age: 56 Year
  Sex: Female

DRUGS (10)
  1. SUMATRIPTAN SUCCINATE [Suspect]
     Indication: MIGRAINE
     Dosage: 100MG AS REQUIRED
     Route: 048
     Dates: start: 19930101
  2. LEVOTHYROXINE SODIUM [Concomitant]
  3. LIPITOR [Concomitant]
  4. LEVOTHYROXINE SODIUM [Concomitant]
  5. TRIMETHOPRIM [Concomitant]
  6. INDIVINA [Concomitant]
  7. ATENOLOL [Concomitant]
  8. ASPIRIN [Concomitant]
  9. NAPROXEN [Concomitant]
     Indication: PAIN
  10. MIGRAINE MEDICATION [Concomitant]
     Dates: start: 19670101, end: 19930101

REACTIONS (2)
  - HYPERTENSION [None]
  - MYOCARDIAL ISCHAEMIA [None]
